FAERS Safety Report 5445100-2 (Version None)
Quarter: 2007Q3

REPORT INFORMATION
  Report Type: 
  Country: None (occurrence: None)
  Receive Date: 20070906
  Receipt Date: 20070827
  Transmission Date: 20080115
  Serious: Yes (Other)
  Sender: FDA-Public Use
  Company Number: AU-PFIZER INC-2007071621

PATIENT
  Sex: Male

DRUGS (2)
  1. SUTENT [Suspect]
     Route: 048
  2. NEXIUM [Concomitant]
     Route: 048

REACTIONS (6)
  - ABDOMINAL DISTENSION [None]
  - DRUG INTOLERANCE [None]
  - GASTROOESOPHAGEAL REFLUX DISEASE [None]
  - HAEMATEMESIS [None]
  - HAEMORRHOIDS [None]
  - VOMITING [None]
